FAERS Safety Report 8173483-1 (Version None)
Quarter: 2012Q1

REPORT INFORMATION
  Report Type: 
  Country: None (occurrence: None)
  Receive Date: 20120229
  Receipt Date: 20120221
  Transmission Date: 20120608
  Serious: Yes (Other)
  Sender: FDA-Public Use
  Company Number: DE-JNJFOC-20120212060

PATIENT
  Sex: Female

DRUGS (8)
  1. DOCETAXEL [Suspect]
     Route: 065
  2. DOXORUBICIN HCL [Suspect]
     Indication: BREAST CANCER
     Route: 042
  3. RADIATION THERAPY NOS [Suspect]
     Indication: BREAST CANCER
     Route: 065
  4. CYCLOPHOSPHAMIDE [Suspect]
     Indication: BREAST CANCER
     Route: 065
  5. HORMONAL TREATMENT NOS [Concomitant]
     Indication: HORMONE LEVEL ABNORMAL
     Route: 065
  6. DOCETAXEL [Suspect]
     Indication: BREAST CANCER
     Route: 065
  7. DOCETAXEL [Suspect]
     Route: 065
  8. DOCETAXEL [Suspect]
     Route: 065

REACTIONS (6)
  - PERIPHERAL SENSORY NEUROPATHY [None]
  - NAIL DISORDER [None]
  - FEBRILE NEUTROPENIA [None]
  - MYALGIA [None]
  - THROMBOCYTOPENIA [None]
  - NEUTROPENIC INFECTION [None]
